FAERS Safety Report 7076408-5 (Version None)
Quarter: 2010Q4

REPORT INFORMATION
  Report Type: 
  Country: None (occurrence: None)
  Receive Date: 20101022
  Receipt Date: 20101008
  Transmission Date: 20110411
  Serious: Yes (Other)
  Sender: FDA-Public Use
  Company Number: 014521

PATIENT
  Sex: Male
  Weight: 100 kg

DRUGS (5)
  1. CIMZIA [Suspect]
     Indication: CROHN'S DISEASE
     Dosage: SUBCUTANEOUS
     Route: 058
     Dates: start: 20090901
  2. VYTORIN [Concomitant]
  3. TAMSULOSIN [Concomitant]
  4. PAXIL [Concomitant]
  5. ASPIRIN [Concomitant]

REACTIONS (3)
  - BLINDNESS UNILATERAL [None]
  - DISEASE RECURRENCE [None]
  - RETINAL DETACHMENT [None]
